FAERS Safety Report 18374999 (Version 1)
Quarter: 2020Q4

REPORT INFORMATION
  Report Type: Spontaneous
  Country: DK (occurrence: DK)
  Receive Date: 20201013
  Receipt Date: 20201013
  Transmission Date: 20210114
  Serious: Yes (Hospitalization)
  Sender: FDA-Public Use
  Company Number: DK-TEVA-2020-DK-1836924

PATIENT
  Age: 71 Year
  Sex: Female

DRUGS (15)
  1. TRAMADOL. [Concomitant]
     Active Substance: TRAMADOL
     Indication: PAIN
     Dosage: UNIT DOSE : 50 MILLIGRAM, DOSAGE: MAX 3 TIMES DAILY
     Route: 048
     Dates: start: 20190411
  2. NITROLINGUAL [Concomitant]
     Active Substance: NITROGLYCERIN
     Indication: CHEST PAIN
     Dosage: UNIT DOSE : 0.4 MG, DOSAGE: MAX 5 TIMES DAILY
     Route: 060
     Dates: start: 20140806
  3. PANTOPRAZOLE [Concomitant]
     Active Substance: PANTOPRAZOLE
     Indication: GASTRIC ULCER
     Dosage: UNIT DOSE : 20 MG
     Route: 048
     Dates: start: 20180301
  4. PARACETAMOL [Concomitant]
     Active Substance: ACETAMINOPHEN
     Indication: PAIN
     Dosage: UNIT DOSE : 1000 MG
     Route: 048
     Dates: start: 20160411
  5. TRAJENTA [Concomitant]
     Active Substance: LINAGLIPTIN
     Indication: TYPE 2 DIABETES MELLITUS
     Dosage: UNIT DOSE : 5 MG
     Route: 048
     Dates: start: 20191121
  6. CETIRIZINE [Concomitant]
     Active Substance: CETIRIZINE HYDROCHLORIDE
     Indication: HYPERSENSITIVITY
     Dosage: UNIT DOSE : 10 MG
     Route: 048
     Dates: start: 20180221
  7. FUROSEMIDE. [Concomitant]
     Active Substance: FUROSEMIDE
     Indication: OEDEMA DUE TO CARDIAC DISEASE
     Dosage: UNIT DOSE : 40 MG
     Route: 048
     Dates: start: 20181012
  8. TERBUTALINE [Concomitant]
     Active Substance: TERBUTALINE
     Indication: BRONCHOSPASM
     Dosage: UNIT DOSE : 0.5 MG
     Route: 055
     Dates: start: 20160713
  9. ALLOPURINOL. [Concomitant]
     Active Substance: ALLOPURINOL
     Indication: GOUT
     Dosage: UNIT DOSE : 300 MG
     Route: 048
     Dates: start: 20190219
  10. VAGIFEM [Concomitant]
     Active Substance: ESTRADIOL
     Indication: HORMONE THERAPY
     Dosage: UNIT DOSE  : 20 MICROGRAM
     Route: 067
     Dates: start: 20160915
  11. QUETIAPINE. [Concomitant]
     Active Substance: QUETIAPINE
     Indication: MENTAL DISORDER
     Dosage: DOSAGE: 50-100 MG
     Route: 048
     Dates: start: 20191002
  12. ACETYLSALICYLIC ACID [Concomitant]
     Active Substance: ASPIRIN
     Indication: THROMBOSIS PROPHYLAXIS
     Dosage: UNIT DOSE : 75 MG,
     Route: 048
  13. ATORVASTATIN ^TEVA^ [Suspect]
     Active Substance: ATORVASTATIN
     Indication: CARDIOVASCULAR EVENT PROPHYLAXIS
     Dosage: UNIT DOSE : 80 MG
     Route: 048
     Dates: start: 20190913, end: 20200711
  14. COLCHICINE. [Concomitant]
     Active Substance: COLCHICINE
     Indication: ARTHRITIS
     Dosage: UNIT DOSE : 1 MG
     Route: 048
     Dates: start: 20200225
  15. POTASSIUM CHLORIDE. [Concomitant]
     Active Substance: POTASSIUM CHLORIDE
     Indication: MINERAL SUPPLEMENTATION
     Dosage: UNIT DOSE : 750 MG
     Route: 048
     Dates: start: 20181012, end: 20200723

REACTIONS (3)
  - Quadriparesis [Unknown]
  - Rhabdomyolysis [Unknown]
  - Myopathy [Unknown]

NARRATIVE: CASE EVENT DATE: 202007
